FAERS Safety Report 7943847-7 (Version None)
Quarter: 2011Q4

REPORT INFORMATION
  Report Type: 
  Country: None (occurrence: None)
  Receive Date: 20111128
  Receipt Date: 20111122
  Transmission Date: 20120403
  Serious: Yes (Hospitalization, Other)
  Sender: FDA-Public Use
  Company Number: US-ROCHE-794652

PATIENT
  Sex: Male
  Weight: 72.64 kg

DRUGS (1)
  1. ACCUTANE [Suspect]
     Indication: ACNE
     Route: 048
     Dates: start: 19840225, end: 19960725

REACTIONS (5)
  - INTESTINAL OBSTRUCTION [None]
  - CROHN'S DISEASE [None]
  - DEPRESSION [None]
  - LIP DRY [None]
  - DRY SKIN [None]
